FAERS Safety Report 7763328-3 (Version None)
Quarter: 2011Q3

REPORT INFORMATION
  Report Type: 
  Country: None (occurrence: None)
  Receive Date: 20110920
  Receipt Date: 20110913
  Transmission Date: 20111222
  Serious: Yes (Death, Hospitalization, Other)
  Sender: FDA-Public Use
  Company Number: US-AMGEN LTD.-US361705

PATIENT
  Age: 80 Year
  Sex: Male
  Weight: 86.168 kg

DRUGS (2)
  1. CYANOCOBALAMIN [Concomitant]
  2. NPLATE [Suspect]
     Indication: IDIOPATHIC THROMBOCYTOPENIC PURPURA
     Dosage: 7 MUG/KG, QWK
     Dates: start: 20081119, end: 20090831

REACTIONS (7)
  - DEATH [None]
  - ANISOCYTOSIS [None]
  - ANAEMIA [None]
  - HYPERKALAEMIA [None]
  - THROMBOCYTOPENIA [None]
  - CEREBROVASCULAR ACCIDENT [None]
  - ASTHENIA [None]
